FAERS Safety Report 16642576 (Version 1)
Quarter: 2019Q3

REPORT INFORMATION
  Report Type: Spontaneous
  Country: US (occurrence: US)
  Receive Date: 20190614
  Receipt Date: 20190614
  Transmission Date: 20191004
  Serious: No
  Sender: FDA-Public Use
  Company Number: None

PATIENT
  Age: 76 Year
  Sex: Male

DRUGS (1)
  1. DAPTOMYCIN 500MG FRESENIUS KABI USA [Suspect]
     Active Substance: DAPTOMYCIN
     Dosage: ?          OTHER FREQUENCY:24HRS;?
     Route: 042
     Dates: start: 20190522

REACTIONS (2)
  - Neuropathy peripheral [None]
  - Loss of personal independence in daily activities [None]

NARRATIVE: CASE EVENT DATE: 20190527
